FAERS Safety Report 12271639 (Version 2)
Quarter: 2016Q2

REPORT INFORMATION
  Report Type: Report from Study
  Country: US (occurrence: US)
  Receive Date: 20160415
  Receipt Date: 20160422
  Transmission Date: 20160815
  Serious: Yes (Hospitalization, Other)
  Sender: FDA-Public Use
  Company Number: US-BEH-2016061026

PATIENT
  Age: 20 Year
  Sex: Female

DRUGS (3)
  1. CYTOGAM [Suspect]
     Active Substance: HUMAN CYTOMEGALOVIRUS IMMUNE GLOBULIN
     Indication: CYTOMEGALOVIRUS INFECTION
     Dosage: RECEIVED 4 INFUSIONS: FIRST 14-DEC-2015 AT 21 WEEKS AND 4 DAYS, LAST INFUSION 16-MAR-2016.
     Route: 042
     Dates: start: 20151214, end: 20160316
  2. ASPIRIN. [Concomitant]
     Active Substance: ASPIRIN
  3. PLACEBO (ALBUMIN 5% DILUTED WITH D5W) [Suspect]
     Active Substance: ALBUMIN HUMAN
     Indication: CYTOMEGALOVIRUS INFECTION
     Route: 042
     Dates: start: 20151214, end: 20160316

REACTIONS (4)
  - Headache [Recovered/Resolved]
  - Premature delivery [Recovered/Resolved]
  - Exposure during pregnancy [Recovered/Resolved]
  - Blood pressure increased [Recovered/Resolved]

NARRATIVE: CASE EVENT DATE: 20151214
